FAERS Safety Report 7212899-4 (Version None)
Quarter: 2010Q4

REPORT INFORMATION
  Report Type: 
  Country: None (occurrence: None)
  Receive Date: 20101227
  Receipt Date: 20101207
  Transmission Date: 20110411
  Serious: Yes (Hospitalization, Other)
  Sender: FDA-Public Use
  Company Number: 20100564

PATIENT
  Age: 33 Year
  Sex: Female

DRUGS (2)
  1. METHYLENE BLUE INJECTION, USP (0310-10) 10 MG/ML [Suspect]
     Indication: PARATHYROIDECTOMY
     Dosage: 7MG/KG
  2. SERTRALINE [Suspect]
     Indication: DEPRESSION

REACTIONS (2)
  - POST PROCEDURAL COMPLICATION [None]
  - SEROTONIN SYNDROME [None]
